FAERS Safety Report 6233762-1 (Version None)
Quarter: 2009Q2

REPORT INFORMATION
  Report Type: 
  Country: None (occurrence: None)
  Receive Date: 20090616
  Receipt Date: 20090616
  Transmission Date: 20091009
  Serious: Yes (Other)
  Sender: FDA-Public Use
  Company Number: None

PATIENT
  Age: 56 Year
  Sex: Female
  Weight: 68.0396 kg

DRUGS (2)
  1. SINGULAIR [Suspect]
     Indication: RHINITIS
     Dosage: ONCE DAILY ONCE DAILY
     Dates: start: 20090301, end: 20090401
  2. SINGULAIR [Suspect]

REACTIONS (7)
  - ANXIETY [None]
  - DEPRESSION [None]
  - FALL [None]
  - JOINT SPRAIN [None]
  - PARALYSIS [None]
  - SUICIDAL IDEATION [None]
  - SUICIDE ATTEMPT [None]
